FAERS Safety Report 6492365-4 (Version None)
Quarter: 2009Q4

REPORT INFORMATION
  Report Type: 
  Country: None (occurrence: None)
  Receive Date: 20091214
  Receipt Date: 20091203
  Transmission Date: 20100525
  Serious: Yes (Hospitalization)
  Sender: FDA-Public Use
  Company Number: JP-ELI_LILLY_AND_COMPANY-JP200904003254

PATIENT
  Sex: Male
  Weight: 56 kg

DRUGS (9)
  1. DULOXETINE HYDROCHLORIDE [Suspect]
     Indication: DIABETIC NEUROPATHY
     Dosage: 20 MG, DAILY (1/D)
     Route: 048
     Dates: start: 20090210, end: 20090216
  2. DULOXETINE HYDROCHLORIDE [Suspect]
     Dosage: 40 MG, DAILY (1/D)
     Route: 048
     Dates: end: 20090223
  3. DULOXETINE HYDROCHLORIDE [Suspect]
     Dosage: 60 MG, DAILY (1/D)
     Route: 048
     Dates: end: 20090406
  4. DULOXETINE HYDROCHLORIDE [Suspect]
     Dosage: 40 MG, DAILY (1/D)
     Route: 048
     Dates: start: 20090407, end: 20090413
  5. DULOXETINE HYDROCHLORIDE [Suspect]
     Dosage: 20 MG, DAILY (1/D)
     Route: 048
     Dates: start: 20090414, end: 20090420
  6. LANTUS [Concomitant]
     Indication: DIABETES MELLITUS
     Dosage: 14 IU, DAILY (1/D)
     Route: 058
     Dates: start: 20081101, end: 20090406
  7. NOVORAPID [Concomitant]
     Indication: DIABETES MELLITUS
     Dosage: 16 IU, DAILY (1/D)
     Route: 058
     Dates: start: 20081102, end: 20090406
  8. LIPITOR [Concomitant]
     Indication: HYPERCHOLESTEROLAEMIA
     Dosage: 10 MG, DAILY (1/D)
     Route: 048
     Dates: start: 20090105
  9. METHYCOBAL [Concomitant]
     Indication: DIABETIC NEUROPATHY
     Dosage: 1500 UG, DAILY (1/D)
     Route: 048
     Dates: start: 20080510

REACTIONS (8)
  - CARDIAC FAILURE [None]
  - CHEST INJURY [None]
  - CONSTIPATION [None]
  - CORONARY ARTERY STENOSIS [None]
  - DIZZINESS [None]
  - GENERALISED OEDEMA [None]
  - HYPERTENSION [None]
  - HYPOTENSION [None]
